FAERS Safety Report 5563337-9 (Version None)
Quarter: 2007Q4

REPORT INFORMATION
  Report Type: 
  Country: None (occurrence: None)
  Receive Date: 20071217
  Receipt Date: 20071205
  Transmission Date: 20080405
  Serious: Yes (Death, Hospitalization)
  Sender: FDA-Public Use
  Company Number: JP-AMGEN-US236442

PATIENT
  Sex: Male
  Weight: 42 kg

DRUGS (13)
  1. ENBREL [Suspect]
     Indication: RHEUMATOID ARTHRITIS
     Route: 058
     Dates: start: 20070420, end: 20070716
  2. OMEPRAL [Concomitant]
     Route: 048
     Dates: start: 20070420, end: 20070716
  3. NEUROVITAN [Concomitant]
     Indication: PROPHYLAXIS
     Route: 048
     Dates: start: 20070420, end: 20070716
  4. ISCOTIN [Concomitant]
     Indication: ANTIBIOTIC PROPHYLAXIS
     Route: 048
     Dates: start: 20070420, end: 20070716
  5. ALDACTONE [Concomitant]
     Route: 048
     Dates: start: 20070308, end: 20070716
  6. KENACORT [Concomitant]
     Indication: RHEUMATOID ARTHRITIS
  7. NICHISTATE [Concomitant]
     Indication: PROPHYLAXIS
     Route: 048
     Dates: start: 20070420, end: 20070716
  8. KLARICID [Concomitant]
     Indication: PROPHYLAXIS
     Route: 048
     Dates: start: 20070420, end: 20070716
  9. EBASTEL [Concomitant]
     Indication: ALLERGY PROPHYLAXIS
     Route: 048
     Dates: start: 20070504, end: 20070716
  10. MUCODYNE [Concomitant]
     Indication: PROPHYLAXIS
     Route: 048
     Dates: start: 20070504, end: 20070716
  11. FOSAMAX [Concomitant]
     Indication: OSTEOPOROSIS
     Route: 048
     Dates: start: 20070608, end: 20070716
  12. PREDNISOLONE [Concomitant]
     Indication: RHEUMATOID ARTHRITIS
     Route: 048
     Dates: start: 20070420, end: 20070716
  13. PROMAC [Concomitant]
     Route: 048
     Dates: start: 20070420, end: 20070716

REACTIONS (1)
  - LARGE INTESTINE PERFORATION [None]
